FAERS Safety Report 11248201 (Version 1)
Quarter: 2015Q3

REPORT INFORMATION
  Report Type: Spontaneous
  Country: US (occurrence: None)
  Receive Date: 20150707
  Receipt Date: 20150707
  Transmission Date: 20151125
  Serious: No
  Sender: FDA-Public Use
  Company Number: None

PATIENT
  Age: 50 Year
  Sex: Female
  Weight: 76.66 kg

DRUGS (5)
  1. KENALOG [Suspect]
     Active Substance: TRIAMCINOLONE ACETONIDE
     Indication: PAIN IN EXTREMITY
     Dosage: INTO KNEE
     Dates: start: 20150519
  2. VITAMIN D [Concomitant]
     Active Substance: CHOLECALCIFEROL
  3. LORAZEPAM. [Concomitant]
     Active Substance: LORAZEPAM
  4. KENALOG [Suspect]
     Active Substance: TRIAMCINOLONE ACETONIDE
     Indication: ARTHRALGIA
     Dosage: INTO KNEE
     Dates: start: 20150519
  5. DILTIAZEM [Concomitant]
     Active Substance: DILTIAZEM

REACTIONS (4)
  - Muscle spasms [None]
  - Postmenopausal haemorrhage [None]
  - Migraine [None]
  - Oligomenorrhoea [None]

NARRATIVE: CASE EVENT DATE: 20010519
